FAERS Safety Report 21641392 (Version 2)
Quarter: 2022Q4

REPORT INFORMATION
  Report Type: Spontaneous
  Country: CN (occurrence: None)
  Receive Date: 20221125
  Receipt Date: 20221213
  Transmission Date: 20230113
  Serious: Yes (Other)
  Sender: FDA-Public Use
  Company Number: 2022A383791

PATIENT
  Age: 27394 Day
  Sex: Male
  Weight: 62 kg

DRUGS (4)
  1. DAPAGLIFLOZIN [Suspect]
     Active Substance: DAPAGLIFLOZIN
     Indication: Blood glucose fluctuation
     Route: 048
     Dates: start: 20221110, end: 20221112
  2. DAPAGLIFLOZIN [Suspect]
     Active Substance: DAPAGLIFLOZIN
     Indication: Diabetes mellitus
     Route: 048
     Dates: start: 20221110, end: 20221112
  3. ACARBOSE [Suspect]
     Active Substance: ACARBOSE
     Indication: Blood glucose fluctuation
     Route: 048
     Dates: start: 20221110, end: 20221112
  4. POLYPEPTIDES [Concomitant]
     Active Substance: POLYPEPTIDES
     Indication: Fracture
     Dosage: 100.000000 MG, ONCE EVERY ONE DAY
     Route: 041
     Dates: start: 20221108, end: 20221112

REACTIONS (5)
  - Chills [Recovering/Resolving]
  - Pyrexia [Recovering/Resolving]
  - Heart rate increased [Unknown]
  - Blood pressure systolic increased [Unknown]
  - Respiratory rate increased [Unknown]

NARRATIVE: CASE EVENT DATE: 20221111
